FAERS Safety Report 10476797 (Version 3)
Quarter: 2015Q1

REPORT INFORMATION
  Report Type: Report from Study
  Country: US (occurrence: US)
  Receive Date: 20140925
  Receipt Date: 20150123
  Transmission Date: 20150720
  Serious: Yes (Hospitalization)
  Sender: FDA-Public Use
  Company Number: US-BRISTOL-MYERS SQUIBB COMPANY-20880514

PATIENT
  Age: 78 Year
  Sex: Male

DRUGS (18)
  1. VESICARE [Concomitant]
     Active Substance: SOLIFENACIN SUCCINATE
     Indication: INCONTINENCE
     Dosage: 5 MG, QD
     Route: 048
     Dates: start: 2011
  2. PLACEBO [Suspect]
     Active Substance: UNSPECIFIED INGREDIENT
     Indication: SMALL CELL LUNG CANCER
     Dosage: 677 MG, QCYCLE
     Route: 042
     Dates: start: 20140331, end: 20140512
  3. BLINDED ETOPOSIDE [Suspect]
     Active Substance: ETOPOSIDE
     Indication: SMALL CELL LUNG CANCER
     Dosage: INT ON 14MAY2014
     Route: 042
     Dates: start: 20140331, end: 20140514
  4. OXYCONTIN [Concomitant]
     Active Substance: OXYCODONE HYDROCHLORIDE
     Indication: PAIN
     Dosage: 10 MG, INTERMITTENT
     Route: 048
     Dates: start: 20140320
  5. BLINDED IPILIMUMAB [Suspect]
     Active Substance: IPILIMUMAB
     Indication: SMALL CELL LUNG CANCER
     Dosage: 677 MG, QCYCLE
     Route: 042
     Dates: start: 20140331, end: 20140512
  6. BLINDED IPILIMUMAB [Suspect]
     Active Substance: IPILIMUMAB
     Indication: SMALL CELL LUNG CANCER
     Dosage: INT ON 14MAY2014
     Route: 042
     Dates: start: 20140331, end: 20140514
  7. PROCRIT [Concomitant]
     Active Substance: ERYTHROPOIETIN
     Indication: ANAEMIA
     Dosage: 1DF = 40,000 UNIT
     Route: 058
     Dates: start: 20140505
  8. BLINDED CARBOPLATIN [Suspect]
     Active Substance: CARBOPLATIN
     Indication: SMALL CELL LUNG CANCER
     Dosage: 677 MG, QCYCLE
     Route: 042
     Dates: start: 20140331, end: 20140512
  9. OMEPRAZOL E [Concomitant]
     Active Substance: OMEPRAZOLE
     Indication: GASTROOESOPHAGEAL REFLUX DISEASE
     Dosage: 20 MG, QD
     Route: 048
     Dates: start: 2011
  10. GLUCOSAMINE [Concomitant]
     Active Substance: GLUCOSAMINE
     Indication: ARTHRITIS
     Dosage: UNK UNK, QD
     Route: 048
     Dates: start: 2011
  11. OXYCODONE [Concomitant]
     Active Substance: OXYCODONE
     Indication: PAIN
     Dosage: 5-10 MG EVERY 4 HRS PRN
     Route: 048
     Dates: start: 20140320
  12. NEUPOGEN [Concomitant]
     Active Substance: FILGRASTIM
     Indication: NEUTROPENIA
     Dosage: 14APR-15APR2014  28APR-29APR2014
     Route: 058
     Dates: start: 20140414, end: 20140429
  13. PLACEBO [Suspect]
     Active Substance: UNSPECIFIED INGREDIENT
     Indication: SMALL CELL LUNG CANCER
     Dosage: 1152 MG, QCYCLE
     Route: 042
     Dates: start: 20140514, end: 20140514
  14. CALCIUM + VITAMIN D [Concomitant]
     Active Substance: CALCIUM\VITAMIN D
     Dosage: UNK UNK, QD
     Route: 048
  15. BLINDED IPILIMUMAB [Suspect]
     Active Substance: IPILIMUMAB
     Indication: SMALL CELL LUNG CANCER
     Dosage: 1152 MG, QCYCLE
     Route: 042
     Dates: start: 20140514, end: 20140514
  16. COMBIGAN [Concomitant]
     Active Substance: BRIMONIDINE TARTRATE\TIMOLOL MALEATE
     Indication: GLAUCOMA
     Dosage: 1 DF, BID
     Route: 047
     Dates: start: 2002
  17. ASA [Concomitant]
     Active Substance: ASPIRIN
     Indication: CORONARY ARTERY DISEASE
     Dosage: 325 MG, QD
     Route: 048
     Dates: start: 2002
  18. PLACEBO [Suspect]
     Active Substance: UNSPECIFIED INGREDIENT
     Indication: SMALL CELL LUNG CANCER
     Dosage: INT ON 14MAY2014
     Route: 042
     Dates: start: 20140331, end: 20140514

REACTIONS (1)
  - Asthenia [Recovered/Resolved]

NARRATIVE: CASE EVENT DATE: 20140527
